FAERS Safety Report 13188354 (Version 1)
Quarter: 2017Q1

REPORT INFORMATION
  Report Type: Spontaneous
  Country: US (occurrence: US)
  Receive Date: 20170203
  Receipt Date: 20170203
  Transmission Date: 20170428
  Serious: Yes (Other)
  Sender: FDA-Public Use
  Company Number: None

PATIENT
  Age: 58 Year
  Sex: Female
  Weight: 65.25 kg

DRUGS (4)
  1. RYTARY [Suspect]
     Active Substance: CARBIDOPA\LEVODOPA
     Indication: PARKINSON^S DISEASE
     Dosage: ?          QUANTITY:9 CAPSULE(S);?
     Route: 048
     Dates: end: 20170131
  2. PREMEPREXOLE [Concomitant]
  3. OXYBUTININ [Concomitant]
     Active Substance: OXYBUTYNIN
  4. ZOLOFT [Concomitant]
     Active Substance: SERTRALINE HYDROCHLORIDE

REACTIONS (2)
  - Vomiting [None]
  - Fatigue [None]

NARRATIVE: CASE EVENT DATE: 20170131
